FAERS Safety Report 16179793 (Version 1)
Quarter: 2019Q2

REPORT INFORMATION
  Report Type: Spontaneous
  Country: US (occurrence: US)
  Receive Date: 20190307
  Receipt Date: 20190307
  Transmission Date: 20190711
  Serious: No
  Sender: FDA-Public Use
  Company Number: None

PATIENT
  Age: 62 Year
  Sex: Male
  Weight: 99.79 kg

DRUGS (7)
  1. OXYCODONE HCL 5MG TABLET [Suspect]
     Active Substance: OXYCODONE
     Indication: BACK PAIN
     Dosage: ?          QUANTITY:5 MG MILLIGRAM(S);OTHER FREQUENCY:4 TABLETS PER DAY;?
     Route: 048
     Dates: start: 20190218, end: 20190220
  2. OXYCODONE HCL 5MG TABLET [Suspect]
     Active Substance: OXYCODONE
     Indication: ROAD TRAFFIC ACCIDENT
     Dosage: ?          QUANTITY:5 MG MILLIGRAM(S);OTHER FREQUENCY:4 TABLETS PER DAY;?
     Route: 048
     Dates: start: 20190218, end: 20190220
  3. PREDNISONE. [Concomitant]
     Active Substance: PREDNISONE
  4. MULTIVITAMINS [Concomitant]
     Active Substance: VITAMINS
  5. GLIPIZIDE. [Concomitant]
     Active Substance: GLIPIZIDE
  6. METFORMIN [Concomitant]
     Active Substance: METFORMIN HYDROCHLORIDE
  7. IBUPROFEN. [Concomitant]
     Active Substance: IBUPROFEN

REACTIONS (6)
  - Inadequate analgesia [None]
  - Suspected counterfeit product [None]
  - Product taste abnormal [None]
  - Drug ineffective [None]
  - Gastric disorder [None]
  - Product substitution issue [None]

NARRATIVE: CASE EVENT DATE: 20190218
